FAERS Safety Report 21689338 (Version 1)
Quarter: 2022Q4

REPORT INFORMATION
  Report Type: Spontaneous
  Country: FR (occurrence: None)
  Receive Date: 20221206
  Receipt Date: 20221206
  Transmission Date: 20230113
  Serious: Yes (Life-Threatening)
  Sender: FDA-Public Use
  Company Number: 2022A393785

PATIENT
  Age: 78 Year
  Sex: Male
  Weight: 71 kg

DRUGS (7)
  1. TICAGRELOR [Interacting]
     Active Substance: TICAGRELOR
     Route: 048
     Dates: start: 20221025, end: 20221031
  2. LOVENOX [Interacting]
     Active Substance: ENOXAPARIN SODIUM
     Indication: Thrombosis prophylaxis
     Route: 058
     Dates: start: 20221018, end: 20221031
  3. KARDEGIC [Interacting]
     Active Substance: ASPIRIN DL-LYSINE
     Route: 048
  4. BACTRIM [Concomitant]
     Active Substance: SULFAMETHOXAZOLE\TRIMETHOPRIM
     Dates: end: 20221031
  5. POLYETHYLENE GLYCOLS [Concomitant]
     Active Substance: POLYETHYLENE GLYCOLS
  6. LEUCOVORIN CALCIUM [Concomitant]
     Active Substance: LEUCOVORIN CALCIUM
     Dates: end: 20221031
  7. ATORVASTATIN [Concomitant]
     Active Substance: ATORVASTATIN
     Dates: end: 20221017

REACTIONS (2)
  - Drug interaction [Not Recovered/Not Resolved]
  - Gastrointestinal haemorrhage [Not Recovered/Not Resolved]

NARRATIVE: CASE EVENT DATE: 20221027
